FAERS Safety Report 16327093 (Version 3)
Quarter: 2019Q4

REPORT INFORMATION
  Report Type: Spontaneous
  Country: US (occurrence: US)
  Receive Date: 20190517
  Receipt Date: 20191230
  Transmission Date: 20200122
  Serious: No
  Sender: FDA-Public Use
  Company Number: US-SA-2019SA133884

PATIENT
  Age: 26 Year
  Sex: Female

DRUGS (1)
  1. CEREZYME [Suspect]
     Active Substance: IMIGLUCERASE
     Dosage: 400 U, 1X
     Route: 041
     Dates: start: 20190524, end: 20190524

REACTIONS (3)
  - Treatment noncompliance [Unknown]
  - Exposure during pregnancy [Unknown]
  - Splenomegaly [Unknown]
